FAERS Safety Report 21414935 (Version 1)
Quarter: 2022Q4

REPORT INFORMATION
  Report Type: Spontaneous
  Country: US (occurrence: US)
  Receive Date: 20221006
  Receipt Date: 20221006
  Transmission Date: 20230113
  Serious: No
  Sender: FDA-Public Use
  Company Number: US-ALLERGAN-2231510US

PATIENT
  Age: 47 Year
  Sex: Female
  Weight: 89.342 kg

DRUGS (2)
  1. QULIPTA [Suspect]
     Active Substance: ATOGEPANT
     Indication: Migraine
  2. NURTEC ODT [Suspect]
     Active Substance: RIMEGEPANT SULFATE
     Indication: Migraine
     Dosage: 75 MG ON MONDAYS, WEDNESDAYS AND FRIDAYS
     Route: 048
     Dates: start: 202106

REACTIONS (2)
  - Taste disorder [Not Recovered/Not Resolved]
  - Drug ineffective [Unknown]
